FAERS Safety Report 11882370 (Version 4)
Quarter: 2016Q2

REPORT INFORMATION
  Report Type: Report from Study
  Country: BR (occurrence: BR)
  Receive Date: 20151231
  Receipt Date: 20160404
  Transmission Date: 20160815
  Serious: Yes (Hospitalization, Other)
  Sender: FDA-Public Use
  Company Number: BR-BAYER-2015-494902

PATIENT
  Age: 63 Year
  Sex: Female

DRUGS (3)
  1. BROMAZEPAM [Concomitant]
     Active Substance: BROMAZEPAM
     Indication: ANXIETY
     Dosage: 6 MG, PRN
     Route: 048
     Dates: start: 1999
  2. BETAFERON [Suspect]
     Active Substance: INTERFERON BETA-1B
     Indication: MULTIPLE SCLEROSIS
     Dosage: 1 ML, QOD, 300MG
     Route: 058
     Dates: start: 199912, end: 20151228
  3. BROMAZEPAM [Concomitant]
     Active Substance: BROMAZEPAM
     Indication: INSOMNIA

REACTIONS (12)
  - Hypertension [Recovered/Resolved]
  - Chest pain [Recovering/Resolving]
  - Pneumonia [Recovered/Resolved]
  - Fatigue [Recovering/Resolving]
  - Optic atrophy [Recovering/Resolving]
  - Left ventricular failure [Recovered/Resolved]
  - Mitral valve disease [Recovered/Resolved]
  - Pain [Not Recovered/Not Resolved]
  - Platelet count decreased [Recovering/Resolving]
  - Skin discolouration [Recovering/Resolving]
  - Multiple sclerosis relapse [Recovering/Resolving]
  - Blood pressure fluctuation [Recovered/Resolved]

NARRATIVE: CASE EVENT DATE: 2010
